FAERS Safety Report 7364035-1 (Version None)
Quarter: 2011Q1

REPORT INFORMATION
  Report Type: 
  Country: None (occurrence: None)
  Receive Date: 20110321
  Receipt Date: 20110307
  Transmission Date: 20110831
  Serious: Yes (Hospitalization, Other)
  Sender: FDA-Public Use
  Company Number: PHHY2010TW81707

PATIENT
  Sex: Male
  Weight: 64 kg

DRUGS (3)
  1. AMN107 [Suspect]
     Indication: CHRONIC MYELOID LEUKAEMIA
     Dosage: 400 MG, QD
     Route: 048
     Dates: start: 20100804
  2. DOXANORM [Concomitant]
     Indication: HYPERTENSION
     Dosage: 02 MG, UNK
     Dates: start: 20000101
  3. NORVASC [Concomitant]
     Indication: HYPERTENSION
     Dosage: 05 MG, QD
     Dates: start: 20000101

REACTIONS (2)
  - ANGINA PECTORIS [None]
  - SINUS BRADYCARDIA [None]
